FAERS Safety Report 6780191-8 (Version None)
Quarter: 2010Q2

REPORT INFORMATION
  Report Type: 
  Country: None (occurrence: None)
  Receive Date: 20100618
  Receipt Date: 20100611
  Transmission Date: 20101027
  Serious: Yes (Hospitalization)
  Sender: FDA-Public Use
  Company Number: PHHO2010ES06920

PATIENT
  Sex: Male
  Weight: 173 kg

DRUGS (2)
  1. MYFORTIC [Suspect]
     Indication: RENAL TRANSPLANT
     Dosage: UNK
     Route: 048
     Dates: start: 20080124, end: 20100506
  2. TACROLIMUS [Suspect]
     Indication: RENAL TRANSPLANT
     Dosage: 2.5MG/DAY
     Route: 048
     Dates: start: 20080124

REACTIONS (5)
  - HERPES ZOSTER [None]
  - MICTURITION DISORDER [None]
  - PAIN [None]
  - RASH [None]
  - SKIN LESION [None]
